FAERS Safety Report 14101074 (Version 1)
Quarter: 2017Q4

REPORT INFORMATION
  Report Type: Spontaneous
  Country: US (occurrence: None)
  Receive Date: 20171017
  Receipt Date: 20171017
  Transmission Date: 20180321
  Serious: No
  Sender: FDA-Public Use
  Company Number: None

PATIENT
  Age: 55 Year
  Sex: Female
  Weight: 49.9 kg

DRUGS (1)
  1. SULFAMETH/TRIMETHOPRIM [Suspect]
     Active Substance: SULFAMETHOXAZOLE\TRIMETHOPRIM
     Indication: URINARY TRACT INFECTION
     Dosage: 800/160MG 1 TABLET TWICE DAILY BY MOUTH
     Route: 048
     Dates: start: 20171012, end: 20171014

REACTIONS (3)
  - Pain [None]
  - Nausea [None]
  - Chest pain [None]

NARRATIVE: CASE EVENT DATE: 20171014
